FAERS Safety Report 10004060 (Version 3)
Quarter: 2015Q1

REPORT INFORMATION
  Report Type: Spontaneous
  Country: US (occurrence: US)
  Receive Date: 20140312
  Receipt Date: 20150327
  Transmission Date: 20150720
  Serious: Yes (Hospitalization)
  Sender: FDA-Public Use
  Company Number: US-BAYER-2014-036236

PATIENT
  Age: 33 Year
  Sex: Female
  Weight: 68.27 kg

DRUGS (5)
  1. YAZ [Suspect]
     Active Substance: DROSPIRENONE\ETHINYL ESTRADIOL
     Dosage: UNK
     Dates: start: 200712
  2. NICOTINE. [Concomitant]
     Active Substance: NICOTINE
  3. LIPITOR [Concomitant]
     Active Substance: ATORVASTATIN CALCIUM
     Dosage: 10 MG, UNK
     Route: 048
  4. YASMIN [Suspect]
     Active Substance: DROSPIRENONE\ETHINYL ESTRADIOL
     Dosage: UNK
     Dates: start: 2004, end: 2005
  5. LEXAPRO [Concomitant]
     Active Substance: ESCITALOPRAM OXALATE
     Dosage: 20 MG, QD
     Route: 048

REACTIONS (5)
  - Pulmonary embolism [Recovering/Resolving]
  - General physical health deterioration [Recovering/Resolving]
  - Pain [Recovering/Resolving]
  - Injury [Recovering/Resolving]
  - Abdominal pain [None]

NARRATIVE: CASE EVENT DATE: 200801
